FAERS Safety Report 5943589-3 (Version None)
Quarter: 2008Q4

REPORT INFORMATION
  Report Type: 
  Country: None (occurrence: None)
  Receive Date: 20081106
  Receipt Date: 20080326
  Transmission Date: 20090506
  Serious: No
  Sender: FDA-Public Use
  Company Number: A0717605A

PATIENT
  Age: 82 Year
  Sex: Male

DRUGS (2)
  1. AMOXICILLIN [Suspect]
     Indication: DENTAL OPERATION
     Dosage: 1CAP TWICE PER DAY
     Route: 048
     Dates: start: 20080317, end: 20080318
  2. VITAMINS [Concomitant]

REACTIONS (2)
  - PRURITUS [None]
  - RASH [None]
